FAERS Safety Report 13234147 (Version 1)
Quarter: 2017Q1

REPORT INFORMATION
  Report Type: Spontaneous
  Country: US (occurrence: US)
  Receive Date: 20170215
  Receipt Date: 20170215
  Transmission Date: 20170428
  Serious: Yes (Life-Threatening, Hospitalization, Disabling)
  Sender: FDA-Public Use
  Company Number: None

PATIENT
  Age: 92 Year
  Sex: Male
  Weight: 72 kg

DRUGS (3)
  1. MULTIPLE VITAMINS [Concomitant]
     Active Substance: VITAMINS
  2. ASACOL [Concomitant]
     Active Substance: MESALAMINE
  3. AMIODARONE HCL 100 MG [Suspect]
     Active Substance: AMIODARONE HYDROCHLORIDE
     Indication: CARDIAC FIBRILLATION

REACTIONS (3)
  - Malaise [None]
  - Pneumonia [None]
  - Apparent death [None]

NARRATIVE: CASE EVENT DATE: 20170103
